FAERS Safety Report 12909907 (Version 1)
Quarter: 2016Q4

REPORT INFORMATION
  Report Type: Report from Study
  Country: ES (occurrence: ES)
  Receive Date: 20161104
  Receipt Date: 20161104
  Transmission Date: 20170207
  Serious: Yes (Other)
  Sender: FDA-Public Use
  Company Number: ES-ACCORD-045304

PATIENT
  Age: 39 Year
  Sex: Male

DRUGS (6)
  1. FLUOROURACIL. [Suspect]
     Active Substance: FLUOROURACIL
     Indication: COLORECTAL CANCER METASTATIC
     Dosage: 12 CYCLES OF FOLFOX6M, STARTED IN 2011 WITH 400 MG/M2 IV BOLUS AND 2400 MG/M2 INFUSION VIA IV DRIP
     Route: 040
  2. IRINOTECAN [Suspect]
     Active Substance: IRINOTECAN
     Indication: COLORECTAL CANCER METASTATIC
     Dosage: RECEIVED 12 CYCLES OF FOLFIRI-AFLIBERCEPT IN AUG-2013 AND AGAIN RECEIVED ON AN UNSPECIFIED DATE
  3. BEVACIZUMAB [Concomitant]
     Active Substance: BEVACIZUMAB
     Indication: COLORECTAL CANCER METASTATIC
     Dosage: ON DAY 01: 14 DAY CYCLE
     Dates: start: 2011
  4. FOLINIC ACID [Suspect]
     Active Substance: LEUCOVORIN
     Indication: COLORECTAL CANCER METASTATIC
     Dosage: 12 CYCLES OF FOLFOX6M, ON DAY 01: 14 DAY CYCLE, STARTED IN 2011 WITH 200 MG/M2 ON DAY 1
  5. OXALIPLATIN. [Suspect]
     Active Substance: OXALIPLATIN
     Indication: COLORECTAL CANCER METASTATIC
     Dosage: ON DAY 01: 14 DAY CYCLE
     Dates: start: 2011
  6. AFLIBERCEPT [Suspect]
     Active Substance: AFLIBERCEPT
     Indication: COLORECTAL CANCER METASTATIC
     Dosage: RECEIVED 12 CYCLES OF FOLFIRI-AFLIBERCEPT IN AUG-2013 AND AGAIN RECEIVED ON AN UNSPECIFIED DATE

REACTIONS (5)
  - Neurotoxicity [Unknown]
  - Hypertension [Unknown]
  - Diarrhoea [Unknown]
  - Proteinuria [Unknown]
  - Alopecia [Unknown]
